FAERS Safety Report 18254203 (Version 3)
Quarter: 2020Q4

REPORT INFORMATION
  Report Type: Spontaneous
  Country: US (occurrence: US)
  Receive Date: 20200910
  Receipt Date: 20201120
  Transmission Date: 20210113
  Serious: No
  Sender: FDA-Public Use
  Company Number: US-PFIZER INC-2020350263

PATIENT
  Age: 74 Year
  Sex: Female

DRUGS (1)
  1. IBRANCE [Suspect]
     Active Substance: PALBOCICLIB
     Dosage: 125 MG, CYCLIC, (1 CAPSULE WITH FOOD ONCE DAILY FOR 24 DAYS, 7 DAYS OFF)

REACTIONS (4)
  - Headache [Unknown]
  - Malaise [Unknown]
  - Feeling abnormal [Unknown]
  - Memory impairment [Unknown]
